FAERS Safety Report 11874756 (Version 1)
Quarter: 2015Q4

REPORT INFORMATION
  Report Type: Report from Study
  Country: US (occurrence: US)
  Receive Date: 20151229
  Receipt Date: 20151229
  Transmission Date: 20160305
  Serious: No
  Sender: FDA-Public Use
  Company Number: PHEH2013US027077

PATIENT
  Sex: Female

DRUGS (4)
  1. TOBI [Suspect]
     Active Substance: TOBRAMYCIN
     Indication: PULMONARY ARTERIAL HYPERTENSION
  2. TOBI [Suspect]
     Active Substance: TOBRAMYCIN
     Indication: BRONCHIECTASIS
  3. TOBI [Suspect]
     Active Substance: TOBRAMYCIN
     Indication: ACUTE RESPIRATORY FAILURE
  4. TOBI [Suspect]
     Active Substance: TOBRAMYCIN
     Indication: OBSTRUCTIVE AIRWAYS DISORDER
     Dosage: 300 MG, BID
     Route: 055
     Dates: start: 20130805, end: 20140106

REACTIONS (2)
  - Malaise [Unknown]
  - Off label use [Unknown]
